FAERS Safety Report 5515830-2 (Version None)
Quarter: 2007Q4

REPORT INFORMATION
  Report Type: 
  Country: None (occurrence: None)
  Receive Date: 20071109
  Receipt Date: 20071030
  Transmission Date: 20080405
  Serious: Yes (Death)
  Sender: FDA-Public Use
  Company Number: 2007JP004959

PATIENT
  Age: 84 Year
  Sex: Female
  Weight: 51.4 kg

DRUGS (5)
  1. TACROLIMUS [Suspect]
     Indication: RHEUMATOID ARTHRITIS
     Dosage: 1.5 MG, D, ORAL
     Route: 048
     Dates: start: 20061003, end: 20061113
  2. PREDNISOLONE [Suspect]
     Dosage: 17.5 MG, D, ORAL
     Route: 048
     Dates: end: 20061113
  3. METFORMIN HYDROCHLORIDE [Concomitant]
  4. LANSOPRAZOLE [Concomitant]
  5. FOSAMAC               (ALENDRONATE SODIUM) [Concomitant]

REACTIONS (1)
  - PNEUMOCYSTIS JIROVECI PNEUMONIA [None]
